FAERS Safety Report 5060497-3 (Version None)
Quarter: 2006Q2

REPORT INFORMATION
  Report Type: 
  Country: None (occurrence: None)
  Receive Date: 20060630
  Receipt Date: 20051026
  Transmission Date: 20061013
  Serious: Yes (Other)
  Sender: FDA-Public Use
  Company Number: VISP-PR-0510S-0561

PATIENT
  Age: 58 Year
  Sex: Female

DRUGS (1)
  1. VISIPAQUE [Suspect]
     Indication: CYST
     Dosage: 100 ML, SINGLE DOSE, I.V.
     Route: 042
     Dates: start: 20051014, end: 20051014

REACTIONS (2)
  - FLUSHING [None]
  - SYNCOPE [None]
